FAERS Safety Report 4625228-7 (Version None)
Quarter: 2005Q2

REPORT INFORMATION
  Report Type: 
  Country: None (occurrence: None)
  Receive Date: 20050401
  Receipt Date: 20050113
  Transmission Date: 20051028
  Serious: Yes (Other)
  Sender: FDA-Public Use
  Company Number: US-ROCHE-392589

PATIENT
  Sex: Male
  Weight: 88.5 kg

DRUGS (4)
  1. PEGASYS [Suspect]
     Indication: HEPATITIS C
     Route: 058
     Dates: start: 20040915
  2. COPEGUS [Suspect]
     Indication: HEPATITIS C
     Dosage: 2 IN THE MORNING AND 2 IN THE EVENING.
     Route: 048
     Dates: start: 20040915
  3. TEGRETOL [Concomitant]
     Route: 048
  4. DILANTIN [Concomitant]
     Route: 048

REACTIONS (3)
  - DIZZINESS [None]
  - IRRITABILITY [None]
  - POLLAKIURIA [None]
